FAERS Safety Report 16317773 (Version 1)
Quarter: 2019Q2

REPORT INFORMATION
  Report Type: Spontaneous
  Country: US (occurrence: US)
  Receive Date: 20190516
  Receipt Date: 20190516
  Transmission Date: 20190711
  Serious: No
  Sender: FDA-Public Use
  Company Number: US-ELI_LILLY_AND_COMPANY-US201905006179

PATIENT
  Sex: Male

DRUGS (1)
  1. CIALIS [Suspect]
     Active Substance: TADALAFIL
     Indication: PRODUCT USED FOR UNKNOWN INDICATION
     Dosage: UNK (BROKE 10 MG TABLET IN HALF), UNKNOWN
     Route: 048

REACTIONS (3)
  - Pain [Unknown]
  - Wrong technique in product usage process [Unknown]
  - Headache [Recovered/Resolved]
